FAERS Safety Report 11590158 (Version 3)
Quarter: 2016Q2

REPORT INFORMATION
  Report Type: Spontaneous
  Country: US (occurrence: US)
  Receive Date: 20151002
  Receipt Date: 20160527
  Transmission Date: 20160815
  Serious: Yes (Other)
  Sender: FDA-Public Use
  Company Number: US-MDT-ADR-2015-01893

PATIENT
  Age: 64 Year
  Sex: Female

DRUGS (2)
  1. LIORESAL [Suspect]
     Active Substance: BACLOFEN
     Dosage: 153.4MCG/DAY
     Route: 037
     Dates: end: 20150722
  2. LIORESAL [Suspect]
     Active Substance: BACLOFEN
     Dosage: 149.8MCG/DAY
     Route: 037
     Dates: start: 20150722

REACTIONS (1)
  - Drug withdrawal syndrome [Recovered/Resolved]
